FAERS Safety Report 23021693 (Version 4)
Quarter: 2024Q3

REPORT INFORMATION
  Report Type: Spontaneous
  Country: IN (occurrence: IN)
  Receive Date: 20231003
  Receipt Date: 20240709
  Transmission Date: 20241016
  Serious: Yes (Other)
  Sender: PFIZER
  Company Number: IN-PFIZER INC-PV202300159958

PATIENT
  Age: 35 Year
  Sex: Male

DRUGS (8)
  1. LORLATINIB [Suspect]
     Active Substance: LORLATINIB
     Indication: Lung neoplasm malignant
     Dosage: 100 MG, 1X/DAY
     Route: 048
     Dates: start: 20230710
  2. LORLATINIB [Suspect]
     Active Substance: LORLATINIB
     Dosage: 100 MG, 1X/DAY (ALTERNATE DAYS FOR 2 WEEKS)
     Route: 048
  3. ALBUTEROL\IPRATROPIUM BROMIDE [Concomitant]
     Active Substance: ALBUTEROL\IPRATROPIUM BROMIDE
     Dosage: UNK, 2X/DAY (NEBULIZE)
     Route: 055
  4. LUMIA 60K [Concomitant]
     Dosage: UNK, WEEKLY
  5. DOMPERIDONE\PANTOPRAZOLE SODIUM [Concomitant]
     Active Substance: DOMPERIDONE\PANTOPRAZOLE SODIUM
     Dosage: UNK
  6. ENO FRUIT SALTS [CITRIC ACID;SODIUM BICARBONATE;TARTARIC ACID] [Concomitant]
     Dosage: UNK, AS NEEDED
  7. BIFILAC HP [Concomitant]
     Dosage: UNK, 2X/DAY
  8. MUCAINE [ALUMINIUM HYDROXIDE GEL;MAGNESIUM HYDROXIDE;OXETACAINE] [Concomitant]
     Dosage: UNK, 3X/DAY

REACTIONS (4)
  - Aspiration pleural cavity [Unknown]
  - Hyperglycaemia [Unknown]
  - Off label use [Unknown]
  - Glycosylated haemoglobin increased [Unknown]
